FAERS Safety Report 14199765 (Version 1)
Quarter: 2017Q4

REPORT INFORMATION
  Report Type: Spontaneous
  Country: US (occurrence: US)
  Receive Date: 20171117
  Receipt Date: 20171117
  Transmission Date: 20180321
  Serious: Yes (Death, Other)
  Sender: FDA-Public Use
  Company Number: US-009507513-1711USA006157

PATIENT
  Age: 84 Year

DRUGS (2)
  1. DEXAMETHASONE. [Suspect]
     Active Substance: DEXAMETHASONE
     Indication: PLASMA CELL MYELOMA
     Dosage: 8 MG, WEEKLY
     Route: 048
     Dates: start: 20150814, end: 20151120
  2. VELCADE [Suspect]
     Active Substance: BORTEZOMIB
     Dosage: 1.9 MG, ONCE
     Route: 058
     Dates: start: 20150821, end: 20151120

REACTIONS (1)
  - Respiratory failure [Fatal]

NARRATIVE: CASE EVENT DATE: 20151214
